FAERS Safety Report 6280527-0 (Version None)
Quarter: 2009Q3

REPORT INFORMATION
  Report Type: 
  Country: None (occurrence: None)
  Receive Date: 20090724
  Receipt Date: 20080829
  Transmission Date: 20100115
  Serious: Yes (Other)
  Sender: FDA-Public Use
  Company Number: A0745221A

PATIENT
  Age: 64 Year
  Sex: Male
  Weight: 113.6 kg

DRUGS (14)
  1. AVANDIA [Suspect]
     Dosage: 8MG PER DAY
     Route: 048
     Dates: start: 20040623, end: 20051230
  2. COREG [Concomitant]
     Dates: start: 20050101
  3. TOPROL-XL [Concomitant]
     Dates: start: 20041122
  4. METOLAZONE [Concomitant]
     Dates: start: 20040820
  5. TORSEMIDE [Concomitant]
     Dates: start: 20050419
  6. LIPITOR [Concomitant]
     Dates: start: 20050513
  7. ASPIRIN [Concomitant]
  8. GLYBURIDE [Concomitant]
     Dosage: 10MG TWICE PER DAY
     Route: 048
  9. METFORMIN HCL [Concomitant]
     Dosage: 1000MG TWICE PER DAY
     Route: 048
  10. LESCOL [Concomitant]
     Dosage: 80MG AT NIGHT
     Route: 048
  11. PLAVIX [Concomitant]
     Dosage: 75MG PER DAY
     Route: 048
  12. FUROSEMIDE [Concomitant]
     Dosage: 120MG PER DAY
     Route: 048
  13. POTASSIUM CHLORIDE [Concomitant]
     Dosage: 2CAP TWICE PER DAY
     Route: 048
  14. LACTULOSE [Concomitant]
     Route: 048

REACTIONS (1)
  - CARDIAC FAILURE CONGESTIVE [None]
